FAERS Safety Report 13388346 (Version 1)
Quarter: 2017Q1

REPORT INFORMATION
  Report Type: Spontaneous
  Country: IN (occurrence: IN)
  Receive Date: 20170330
  Receipt Date: 20170330
  Transmission Date: 20170429
  Serious: Yes (Other)
  Sender: FDA-Public Use
  Company Number: IN-LUPIN PHARMACEUTICALS INC.-2017-01425

PATIENT
  Age: 14 Year
  Sex: Female

DRUGS (2)
  1. PHENYTOIN                          /00017402/ [Concomitant]
     Active Substance: PHENYTOIN
     Indication: EPILEPSY
     Dosage: 50 MG, TID
     Route: 065
  2. LEVETIRACETAM. [Suspect]
     Active Substance: LEVETIRACETAM
     Indication: EPILEPSY
     Dosage: 500 MG, DAILY
     Route: 065

REACTIONS (1)
  - Hypersensitivity vasculitis [Recovered/Resolved]
